FAERS Safety Report 13302069 (Version 1)
Quarter: 2017Q1

REPORT INFORMATION
  Report Type: Spontaneous
  Country: None (occurrence: US)
  Receive Date: 20170307
  Receipt Date: 20170307
  Transmission Date: 20170428
  Serious: No
  Sender: FDA-Public Use
  Company Number: None

PATIENT
  Age: 55 Year
  Sex: Male
  Weight: 98 kg

DRUGS (2)
  1. LEUPROLIDE ACETATE. [Suspect]
     Active Substance: LEUPROLIDE ACETATE
     Dates: end: 20160129
  2. CASODEX [Suspect]
     Active Substance: BICALUTAMIDE
     Dates: end: 20140910

REACTIONS (4)
  - Proctalgia [None]
  - Urethral fistula [None]
  - Anal fistula [None]
  - Rectourethral fistula [None]

NARRATIVE: CASE EVENT DATE: 20161025
